FAERS Safety Report 8956723 (Version 1)
Quarter: 2012Q4

REPORT INFORMATION
  Report Type: 
  Country: US (occurrence: US)
  Receive Date: 20121210
  Receipt Date: 20121210
  Transmission Date: 20130627
  Serious: No
  Sender: FDA-Public Use
  Company Number: US-PFIZER INC-2012308110

PATIENT
  Age: 51 Year
  Sex: Female
  Weight: 107 kg

DRUGS (16)
  1. CENTRUM [Suspect]
     Dosage: UNK
  2. PROTONIX [Suspect]
     Dosage: UNK
  3. CELEBREX [Suspect]
     Dosage: UNK
  4. CIPROFLOXACIN HYDROCHLORIDE [Suspect]
     Dosage: UNK
  5. NEXIUM [Suspect]
     Dosage: UNK
  6. SOMA [Suspect]
     Dosage: UNK
  7. BIAXIN [Suspect]
     Dosage: UNK
  8. BACTRIM [Suspect]
     Dosage: UNK
  9. PRILOSEC [Suspect]
     Dosage: UNK
  10. VIOXX [Suspect]
     Dosage: UNK
  11. DEXLANSOPRAZOLE [Concomitant]
     Indication: ACID REFLUX (OESOPHAGEAL)
     Dosage: UNK
  12. TRAMADOL HYDROCHLORIDE [Concomitant]
     Indication: NEUROPATHY PERIPHERAL
     Dosage: UNK
     Dates: start: 201210
  13. TRAMADOL HYDROCHLORIDE [Concomitant]
     Indication: NECK INJURY
  14. TRAMADOL HYDROCHLORIDE [Concomitant]
     Indication: BACK INJURY
  15. METHOCARBAMOL [Concomitant]
     Indication: NEUROPATHY PERIPHERAL
     Dosage: UNK
  16. HYDROCODONE [Concomitant]
     Indication: PAIN
     Dosage: UNK, as needed

REACTIONS (1)
  - Drug hypersensitivity [Unknown]
